FAERS Safety Report 16493438 (Version 1)
Quarter: 2019Q2

REPORT INFORMATION
  Report Type: Report from Study
  Country: GB (occurrence: GB)
  Receive Date: 20190628
  Receipt Date: 20190628
  Transmission Date: 20190711
  Serious: Yes (Other)
  Sender: FDA-Public Use
  Company Number: GB-EMD SERONO-9088028

PATIENT
  Age: 37 Year
  Sex: Female

DRUGS (1)
  1. MAVENCLAD [Suspect]
     Active Substance: CLADRIBINE
     Indication: MULTIPLE SCLEROSIS
     Dosage: FIRST WEEK THERAPY: TWO TABLETS ON DAY 1 AND ONE TABLET ON DAYS 2 TO 5 (EACH TABLET OF 10 MG), STOP
     Route: 048
     Dates: start: 20190417

REACTIONS (9)
  - Cardiac disorder [Unknown]
  - Alopecia [Unknown]
  - Migraine [Not Recovered/Not Resolved]
  - Hyperhidrosis [Unknown]
  - Nasopharyngitis [Unknown]
  - Palpitations [Recovering/Resolving]
  - Pollakiuria [Unknown]
  - Autoscopy [Recovering/Resolving]
  - Diarrhoea [Unknown]

NARRATIVE: CASE EVENT DATE: 201904
